FAERS Safety Report 6681839-9 (Version None)
Quarter: 2010Q2

REPORT INFORMATION
  Report Type: 
  Country: None (occurrence: None)
  Receive Date: 20100414
  Receipt Date: 20100406
  Transmission Date: 20101027
  Serious: Yes (Other)
  Sender: FDA-Public Use
  Company Number: RU-ABBOTT-10P-251-0636708-00

PATIENT
  Age: 25 Year
  Sex: Male

DRUGS (6)
  1. DEPAKENE [Suspect]
     Indication: EPILEPSY
     Dosage: EXTENDED-RELEASE 500MG DAILY
     Route: 048
     Dates: start: 20070601, end: 20090301
  2. DEPAKENE [Suspect]
     Dosage: 2000MG
     Route: 048
     Dates: start: 20090301
  3. RIFAMPICIN [Concomitant]
     Indication: DRUG USE FOR UNKNOWN INDICATION
     Dates: start: 20091029
  4. ISONIAZID [Concomitant]
     Indication: DRUG USE FOR UNKNOWN INDICATION
     Dates: start: 20091029
  5. PIRACETAM [Concomitant]
     Indication: DRUG USE FOR UNKNOWN INDICATION
  6. CINNARIZINE [Concomitant]
     Indication: DRUG USE FOR UNKNOWN INDICATION

REACTIONS (6)
  - CONVULSION [None]
  - DRUG INEFFECTIVE [None]
  - RASH [None]
  - THROMBOCYTOPENIA [None]
  - TREMOR [None]
  - VASCULAR PURPURA [None]
